FAERS Safety Report 4355696-X (Version None)
Quarter: 2004Q2

REPORT INFORMATION
  Report Type: 
  Country: None (occurrence: None)
  Receive Date: 20040507
  Receipt Date: 20040420
  Transmission Date: 20050107
  Serious: Yes (Hospitalization)
  Sender: FDA-Public Use
  Company Number: 2004-0006864

PATIENT
  Age: 45 Year
  Sex: Male
  Weight: 81.6475 kg

DRUGS (3)
  1. VIRED (TENOFOVIR DISOPROXIL FUMARATE) [Suspect]
     Indication: HIV INFECTION
     Dosage: 300 MG, 1 IN 1 D, ORAL
     Route: 048
     Dates: start: 20020101, end: 20040101
  2. COMBIVIR [Suspect]
     Indication: HIV INFECTION
     Dosage: 1 DOSAGE FORMS, 2 IN 1 D
     Dates: start: 20020101, end: 20040101
  3. ANDROGEL [Concomitant]

REACTIONS (8)
  - BLOOD TEST ABNORMAL [None]
  - CARDIOMYOPATHY [None]
  - DYSPNOEA EXERTIONAL [None]
  - EJECTION FRACTION ABNORMAL [None]
  - EXTRASYSTOLES [None]
  - NAUSEA [None]
  - PALPITATIONS [None]
  - VIRAL INFECTION [None]
